FAERS Safety Report 18221784 (Version 1)
Quarter: 2020Q3

REPORT INFORMATION
  Report Type: Spontaneous
  Country: GB (occurrence: GB)
  Receive Date: 20200902
  Receipt Date: 20200902
  Transmission Date: 20201103
  Serious: Yes (Hospitalization)
  Sender: FDA-Public Use
  Company Number: GB-ACCORD-198981

PATIENT
  Age: 71 Year
  Sex: Female
  Weight: 81.25 kg

DRUGS (10)
  1. CYCLIZINE [Concomitant]
     Active Substance: CYCLIZINE
     Dosage: THREE TIMES A DAY
  2. APIXABAN [Suspect]
     Active Substance: APIXABAN
     Indication: ATRIAL FIBRILLATION
     Route: 048
     Dates: end: 20200804
  3. FLUCONAZOLE. [Concomitant]
     Active Substance: FLUCONAZOLE
     Dosage: MORNING FOR 7/7
  4. RAMIPRIL. [Concomitant]
     Active Substance: RAMIPRIL
     Dosage: MORNING
  5. HUMULIN M3 [Concomitant]
     Active Substance: INSULIN HUMAN
  6. CO?AMOXICLAV [Concomitant]
     Active Substance: AMOXICILLIN\CLAVULANATE POTASSIUM
     Indication: ORAL CANDIDIASIS
     Dosage: FOR 5/7
  7. BISOPROLOL [Concomitant]
     Active Substance: BISOPROLOL
     Dosage: MORNING
  8. PARACETAMOL [Concomitant]
     Active Substance: ACETAMINOPHEN
     Dosage: FOUR TIMES A DAY
  9. ATORVASTATIN [Concomitant]
     Active Substance: ATORVASTATIN
     Dosage: NIGHT
  10. DIGOXIN. [Concomitant]
     Active Substance: DIGOXIN
     Dosage: MORNING

REACTIONS (2)
  - Haematuria [Recovering/Resolving]
  - Nephrolithiasis [Unknown]

NARRATIVE: CASE EVENT DATE: 20200804
